FAERS Safety Report 18400839 (Version 8)
Quarter: 2021Q4

REPORT INFORMATION
  Report Type: Report from Study
  Country: CA (occurrence: CA)
  Receive Date: 20201019
  Receipt Date: 20211223
  Transmission Date: 20220303
  Serious: Yes (Other)
  Sender: FDA-Public Use
  Company Number: PHHY2017CA137538

PATIENT
  Age: 55 Year
  Sex: Female

DRUGS (15)
  1. ILARIS [Suspect]
     Active Substance: CANAKINUMAB
     Indication: Muckle-Wells syndrome
     Dosage: 150 MG, EVERY 8 WEEKS
     Route: 058
     Dates: start: 20150205
  2. ILARIS [Suspect]
     Active Substance: CANAKINUMAB
     Dosage: 300 MG, 8 WEEKS
     Route: 058
     Dates: start: 20150205
  3. ILARIS [Suspect]
     Active Substance: CANAKINUMAB
     Dosage: UNK
     Route: 058
     Dates: start: 20170711
  4. ILARIS [Suspect]
     Active Substance: CANAKINUMAB
     Dosage: 150 MG, EVERY 8 WEEKS
     Route: 058
     Dates: start: 20170905
  5. ILARIS [Suspect]
     Active Substance: CANAKINUMAB
     Dosage: UNK
     Route: 065
     Dates: start: 20171030
  6. ILARIS [Suspect]
     Active Substance: CANAKINUMAB
     Dosage: 150 MG, EVERY 8 WEEKS
     Route: 058
     Dates: start: 20171221
  7. ILARIS [Suspect]
     Active Substance: CANAKINUMAB
     Dosage: 150 MG, EVERY 8 WEEKS
     Route: 058
     Dates: start: 20180222
  8. ILARIS [Suspect]
     Active Substance: CANAKINUMAB
     Dosage: UNK
     Route: 058
  9. ILARIS [Suspect]
     Active Substance: CANAKINUMAB
     Dosage: 300 MG, UNK (8 WEEKS)
     Route: 058
     Dates: start: 20180810
  10. ILARIS [Suspect]
     Active Substance: CANAKINUMAB
     Dosage: 300 MG, UNK (8 WEEKS)
     Route: 058
     Dates: start: 20190124
  11. ILARIS [Suspect]
     Active Substance: CANAKINUMAB
     Dosage: 300 MG, UNK (8 WEEKS)
     Route: 058
     Dates: start: 20190517
  12. ILARIS [Suspect]
     Active Substance: CANAKINUMAB
     Dosage: 300 UNK, EVERY 8 WEEKS
     Route: 058
     Dates: start: 20190705
  13. ILARIS [Suspect]
     Active Substance: CANAKINUMAB
     Dosage: 300 UNK, EVERY 8 WEEKS
     Route: 058
     Dates: start: 20190821
  14. ILARIS [Suspect]
     Active Substance: CANAKINUMAB
     Dosage: 300 UNK, EVERY 8 WEEKS
     Route: 058
     Dates: start: 20191211
  15. ILARIS [Suspect]
     Active Substance: CANAKINUMAB
     Dosage: 300 MG (EVERY 8 WEEKS, LAST ILARIS INJECTION)
     Route: 058
     Dates: start: 20200810

REACTIONS (11)
  - Blood pressure increased [Unknown]
  - Arthralgia [Unknown]
  - Chest pain [Recovered/Resolved with Sequelae]
  - COVID-19 [Unknown]
  - Rash [Recovered/Resolved]
  - Urticaria [Recovered/Resolved]
  - Myalgia [Recovered/Resolved]
  - Ocular hyperaemia [Recovered/Resolved]
  - Cough [Recovered/Resolved with Sequelae]
  - Nasopharyngitis [Recovered/Resolved with Sequelae]
  - Inappropriate schedule of product administration [Unknown]

NARRATIVE: CASE EVENT DATE: 20170905
